FAERS Safety Report 26097683 (Version 1)
Quarter: 2025Q4

REPORT INFORMATION
  Report Type: Spontaneous
  Country: EU (occurrence: EU)
  Receive Date: 20251127
  Receipt Date: 20251127
  Transmission Date: 20260118
  Serious: Yes (Hospitalization)
  Sender: SOMERSET THERAPEUTICS, LLC
  Company Number: EU-MIT-25-75-FR-2025-SOM-LIT-00444

PATIENT
  Age: 71 Year
  Sex: Male

DRUGS (28)
  1. PEMETREXED DISODIUM [Suspect]
     Active Substance: PEMETREXED DISODIUM
     Indication: Non-small cell lung cancer
     Dosage: 1ST CYCLE
     Route: 065
     Dates: start: 20240205
  2. PEMETREXED DISODIUM [Suspect]
     Active Substance: PEMETREXED DISODIUM
     Dosage: 2ND CYCLE
     Route: 065
     Dates: start: 20240318
  3. PEMETREXED DISODIUM [Suspect]
     Active Substance: PEMETREXED DISODIUM
     Dosage: 3RD CYCLE
     Route: 065
     Dates: start: 20240408
  4. PEMETREXED DISODIUM [Suspect]
     Active Substance: PEMETREXED DISODIUM
     Dosage: 4TH CYCLE
     Route: 065
     Dates: start: 20240429
  5. PEMETREXED DISODIUM [Suspect]
     Active Substance: PEMETREXED DISODIUM
     Dosage: CUMULATIVE DOSE: 4962,5 MG, 5TH CYCLE
     Route: 065
     Dates: start: 20240522
  6. PEMETREXED DISODIUM [Suspect]
     Active Substance: PEMETREXED DISODIUM
     Dosage: CUMULATIVE DOSE: 5962,5 MG, 6TH CYCLE
     Route: 065
     Dates: start: 20240619
  7. PEMETREXED DISODIUM [Suspect]
     Active Substance: PEMETREXED DISODIUM
     Dosage: CUMULATIVE DOSE: 6962,5 MG, 7TH CYCLE
     Route: 065
     Dates: start: 20240710
  8. ASPIRIN [Suspect]
     Active Substance: ASPIRIN
     Indication: Product used for unknown indication
     Route: 065
  9. BISOPROLOL [Suspect]
     Active Substance: BISOPROLOL
     Indication: Product used for unknown indication
     Route: 065
  10. AMLODIPINE [Suspect]
     Active Substance: AMLODIPINE BESYLATE
     Indication: Product used for unknown indication
     Route: 065
  11. PERINDOPRIL [Suspect]
     Active Substance: PERINDOPRIL
     Indication: Product used for unknown indication
     Route: 065
  12. ROSUVASTATIN [Suspect]
     Active Substance: ROSUVASTATIN
     Indication: Product used for unknown indication
     Route: 065
  13. TADALAFIL [Suspect]
     Active Substance: TADALAFIL
     Indication: Product used for unknown indication
     Route: 065
  14. LANSOPRAZOLE [Suspect]
     Active Substance: LANSOPRAZOLE
     Indication: Product used for unknown indication
     Route: 065
  15. CARBOPLATIN [Concomitant]
     Active Substance: CARBOPLATIN
     Indication: Non-small cell lung cancer
     Dosage: 1ST CYCLE
     Route: 065
     Dates: start: 20240205
  16. CARBOPLATIN [Concomitant]
     Active Substance: CARBOPLATIN
     Dosage: 2ND CYCLE
     Route: 065
     Dates: start: 20240318
  17. CARBOPLATIN [Concomitant]
     Active Substance: CARBOPLATIN
     Dosage: 3RD CYCLE
     Route: 065
     Dates: start: 20240408
  18. CARBOPLATIN [Concomitant]
     Active Substance: CARBOPLATIN
     Dosage: 4TH CYCLE
     Route: 065
     Dates: start: 20240429
  19. PEMBROLIZUMAB [Concomitant]
     Active Substance: PEMBROLIZUMAB
     Indication: Non-small cell lung cancer
     Dosage: 1ST CYCLE
     Route: 065
     Dates: start: 20240205
  20. PEMBROLIZUMAB [Concomitant]
     Active Substance: PEMBROLIZUMAB
     Dosage: 2ND CYCLE
     Route: 065
     Dates: start: 20240318
  21. PEMBROLIZUMAB [Concomitant]
     Active Substance: PEMBROLIZUMAB
     Dosage: 3RD CYCLE
     Route: 065
     Dates: start: 20240408
  22. PEMBROLIZUMAB [Concomitant]
     Active Substance: PEMBROLIZUMAB
     Dosage: 4TH CYCLE
     Route: 065
     Dates: start: 20240429
  23. PEMBROLIZUMAB [Concomitant]
     Active Substance: PEMBROLIZUMAB
     Dosage: CUMULATIVE DOSE: 4962,5 MG, 5TH CYCLE
     Route: 065
     Dates: start: 20240522
  24. PEMBROLIZUMAB [Concomitant]
     Active Substance: PEMBROLIZUMAB
     Dosage: CUMULATIVE DOSE: 5962,5 MG, 6TH CYCLE
     Route: 065
     Dates: start: 20240619
  25. PEMBROLIZUMAB [Concomitant]
     Active Substance: PEMBROLIZUMAB
     Dosage: CUMULATIVE DOSE: 6962,5 MG, 7TH CYCLE
     Route: 065
     Dates: start: 20240710
  26. COBAMAMIDE [Concomitant]
     Active Substance: COBAMAMIDE
     Indication: Product used for unknown indication
     Route: 065
  27. LEUCOVORIN [Concomitant]
     Active Substance: LEUCOVORIN\LEUCOVORIN CALCIUM
     Indication: Product used for unknown indication
     Route: 065
  28. PREDNISONE [Concomitant]
     Active Substance: PREDNISONE
     Indication: Product used for unknown indication
     Route: 065

REACTIONS (3)
  - Pseudocellulitis [Recovered/Resolved]
  - Toxicity to various agents [Recovered/Resolved]
  - Drug interaction [Unknown]

NARRATIVE: CASE EVENT DATE: 20240101
